FAERS Safety Report 7302676-8 (Version None)
Quarter: 2011Q1

REPORT INFORMATION
  Report Type: 
  Country: None (occurrence: None)
  Receive Date: 20110218
  Receipt Date: 20110210
  Transmission Date: 20110831
  Serious: Yes (Death)
  Sender: FDA-Public Use
  Company Number: ES-MPIJNJ-2011-00587

PATIENT

DRUGS (3)
  1. MELPHALAN [Concomitant]
     Indication: MULTIPLE MYELOMA
  2. VELCADE [Suspect]
     Indication: MULTIPLE MYELOMA
  3. PREDNISONE [Concomitant]
     Indication: MULTIPLE MYELOMA

REACTIONS (2)
  - RESPIRATORY DISORDER [None]
  - PNEUMONIA [None]
